FAERS Safety Report 22635056 (Version 1)
Quarter: 2023Q2

REPORT INFORMATION
  Report Type: Spontaneous
  Country: AT (occurrence: None)
  Receive Date: 20230623
  Receipt Date: 20230623
  Transmission Date: 20230721
  Serious: Yes (Other)
  Sender: FDA-Public Use
  Company Number: 2023A142666

PATIENT
  Age: 80 Year
  Sex: Female

DRUGS (2)
  1. DAPAGLIFLOZIN [Suspect]
     Active Substance: DAPAGLIFLOZIN
     Indication: Type 2 diabetes mellitus
     Route: 048
     Dates: start: 20230418, end: 20230614
  2. DAPAGLIFLOZIN [Suspect]
     Active Substance: DAPAGLIFLOZIN
     Indication: Cardiac disorder
     Route: 048
     Dates: start: 20230418, end: 20230614

REACTIONS (4)
  - C-reactive protein increased [Unknown]
  - N-terminal prohormone brain natriuretic peptide increased [Unknown]
  - Depressed mood [Unknown]
  - Pruritus genital [Unknown]

NARRATIVE: CASE EVENT DATE: 20230418
